FAERS Safety Report 18045043 (Version 1)
Quarter: 2020Q3

REPORT INFORMATION
  Report Type: Spontaneous
  Country: US (occurrence: US)
  Receive Date: 20200720
  Receipt Date: 20200720
  Transmission Date: 20201103
  Serious: Yes (Other)
  Sender: FDA-Public Use
  Company Number: US-PFIZER INC-2020275921

PATIENT
  Age: 68 Year
  Sex: Female

DRUGS (1)
  1. CHANTIX [Suspect]
     Active Substance: VARENICLINE TARTRATE
     Dosage: WENT UP TO A PACK A DAY

REACTIONS (3)
  - Anxiety [Unknown]
  - Tobacco user [Unknown]
  - Lung adenocarcinoma [Unknown]
